FAERS Safety Report 24318470 (Version 2)
Quarter: 2024Q4

REPORT INFORMATION
  Report Type: Spontaneous
  Country: AU (occurrence: AU)
  Receive Date: 20240913
  Receipt Date: 20241021
  Transmission Date: 20250115
  Serious: Yes (Other)
  Sender: JOHNSON AND JOHNSON
  Company Number: AU-JNJFOC-20240917980

PATIENT
  Age: 44 Year
  Sex: Female

DRUGS (3)
  1. STELARA [Suspect]
     Active Substance: USTEKINUMAB
     Indication: Crohn^s disease
     Dosage: 45 MG/0.5 ML
     Route: 058
  2. STELARA [Suspect]
     Active Substance: USTEKINUMAB
     Indication: Arteritis
     Dosage: 5.0 MG/1 ML
     Route: 040
  3. STELARA [Suspect]
     Active Substance: USTEKINUMAB
     Dosage: 90MG/1.0 ML
     Route: 058

REACTIONS (3)
  - Cervix carcinoma [Unknown]
  - Cerebrovascular accident [Unknown]
  - Drug ineffective [Unknown]
